FAERS Safety Report 9065811 (Version 1)
Quarter: 2013Q1

REPORT INFORMATION
  Report Type: Spontaneous
  Country: FR (occurrence: FR)
  Receive Date: 20130214
  Receipt Date: 20130214
  Transmission Date: 20140127
  Serious: Yes (Life-Threatening, Hospitalization, Other)
  Sender: FDA-Public Use
  Company Number: FR-JNJFOC-20121212042

PATIENT
  Age: 71 None
  Sex: Male
  Weight: 58 kg

DRUGS (9)
  1. ZYTIGA [Suspect]
     Indication: PROSTATE CANCER
     Dosage: 250 MG X 4 = 1000 MG
     Route: 048
     Dates: start: 20120807, end: 20121109
  2. DECAPEPTYL [Concomitant]
     Indication: PROSTATE CANCER
     Route: 030
     Dates: start: 2002
  3. KARDEGIC [Concomitant]
     Indication: TRANSIENT ISCHAEMIC ATTACK
     Route: 048
     Dates: start: 201106
  4. OMEPRAZOLE [Concomitant]
     Indication: GASTRITIS
     Route: 048
     Dates: start: 2011
  5. ZOMETA [Concomitant]
     Indication: METASTASES TO BONE
     Route: 042
     Dates: start: 2011
  6. PARACETAMOL [Concomitant]
     Indication: PAIN
     Route: 048
     Dates: start: 20120913
  7. SOLUPRED [Concomitant]
     Indication: PAIN
     Route: 048
     Dates: start: 20120807
  8. OXYCONTIN [Concomitant]
     Indication: PAIN
     Route: 048
     Dates: start: 20120913
  9. OXYNORM [Concomitant]
     Indication: PAIN
     Route: 048
     Dates: start: 20120912

REACTIONS (5)
  - Therapeutic response decreased [Not Recovered/Not Resolved]
  - General physical health deterioration [Unknown]
  - Anaemia [Unknown]
  - Urinary tract infection [Unknown]
  - Prostatic specific antigen increased [Unknown]
